FAERS Safety Report 24003400 (Version 1)
Quarter: 2024Q2

REPORT INFORMATION
  Report Type: Spontaneous
  Country: US (occurrence: US)
  Receive Date: 20240624
  Receipt Date: 20240624
  Transmission Date: 20240716
  Serious: No
  Sender: FDA-Public Use
  Company Number: US-SANDOZ-SDZ2024US059786

PATIENT
  Sex: Female

DRUGS (2)
  1. ESTRADIOL [Suspect]
     Active Substance: ESTRADIOL
     Indication: Product used for unknown indication
     Dosage: 0.05MG/1D 4TTSM US
     Route: 062
  2. PROGESTERONE [Suspect]
     Active Substance: PROGESTERONE
     Indication: Product used for unknown indication
     Dosage: 100 MG
     Route: 065

REACTIONS (7)
  - Peripheral swelling [Unknown]
  - Product adhesion issue [Unknown]
  - Product use issue [Unknown]
  - Abdominal distension [Unknown]
  - Back pain [Unknown]
  - Nausea [Unknown]
  - Headache [Unknown]
